FAERS Safety Report 23481393 (Version 1)
Quarter: 2024Q1

REPORT INFORMATION
  Report Type: Spontaneous
  Country: RO (occurrence: RO)
  Receive Date: 20240205
  Receipt Date: 20240205
  Transmission Date: 20240410
  Serious: Yes (Other)
  Sender: FDA-Public Use
  Company Number: RO-ASTELLAS-2024US003524

PATIENT
  Age: 49 Year
  Sex: Male

DRUGS (1)
  1. GILTERITINIB [Suspect]
     Active Substance: GILTERITINIB
     Indication: Product used for unknown indication
     Route: 065
     Dates: start: 20230922

REACTIONS (2)
  - Pancytopenia [Unknown]
  - Hepatic cytolysis [Unknown]
